FAERS Safety Report 16249611 (Version 4)
Quarter: 2019Q2

REPORT INFORMATION
  Report Type: Report from Study
  Country: US (occurrence: US)
  Receive Date: 20190429
  Receipt Date: 20190517
  Transmission Date: 20190711
  Serious: Yes (Hospitalization)
  Sender: FDA-Public Use
  Company Number: US-TAIHO ONCOLOGY  INC-EU-2019-01134

PATIENT
  Age: 70 Year
  Sex: Female
  Weight: 49 kg

DRUGS (8)
  1. TAS-102 [Suspect]
     Active Substance: TIPIRACIL HYDROCHLORIDE\TRIFLURIDINE
     Indication: PANCREATIC CARCINOMA
     Dosage: DAYS 1-5.?COMPLETED ONE CYCLE ON 30/MAR/2019.
     Route: 048
     Dates: start: 20190325
  2. CEVIMELINE. [Concomitant]
     Active Substance: CEVIMELINE
     Route: 048
  3. LACTULOSE. [Concomitant]
     Active Substance: LACTULOSE
     Dosage: ONCE
     Route: 048
  4. PANTOPRAZOLE [Concomitant]
     Active Substance: PANTOPRAZOLE
     Route: 048
  5. NYSTATIN. [Concomitant]
     Active Substance: NYSTATIN
     Dosage: SUSPENSION
     Route: 048
  6. CREON [Concomitant]
     Active Substance: PANCRELIPASE AMYLASE\PANCRELIPASE LIPASE\PANCRELIPASE PROTEASE
     Route: 048
  7. HYDROXYCHLOROQUINE [Concomitant]
     Active Substance: HYDROXYCHLOROQUINE
     Route: 048
  8. IRINOTECAN HYDROCHLORIDE. [Suspect]
     Active Substance: IRINOTECAN HYDROCHLORIDE
     Indication: PANCREATIC CARCINOMA
     Dosage: COMPLETED ONE CYCLE ON 25/MAR/2019.
     Route: 042
     Dates: start: 20190325

REACTIONS (4)
  - Confusional state [Recovered/Resolved]
  - Mental disorder [Recovered/Resolved]
  - Dehydration [Recovered/Resolved]
  - Cytopenia [Recovered/Resolved]

NARRATIVE: CASE EVENT DATE: 20190407
